FAERS Safety Report 9207559 (Version 11)
Quarter: 2024Q4

REPORT INFORMATION
  Report Type: Report from Study
  Country: CA (occurrence: CA)
  Receive Date: 20130403
  Receipt Date: 20241211
  Transmission Date: 20250115
  Serious: Yes (Other)
  Sender: ROCHE
  Company Number: CA-ROCHE-1208884

PATIENT
  Age: 46 Year
  Sex: Female

DRUGS (8)
  1. XOLAIR [Suspect]
     Active Substance: OMALIZUMAB
     Indication: Asthma
     Dosage: SOLUTION FOR INJECTION IN PRE-FILLED SYRINGE
     Route: 058
     Dates: start: 20110810
  2. XOLAIR [Suspect]
     Active Substance: OMALIZUMAB
     Route: 058
     Dates: start: 20111019
  3. XOLAIR [Suspect]
     Active Substance: OMALIZUMAB
     Route: 058
     Dates: start: 20130717
  4. SPIRIVA [Concomitant]
     Active Substance: TIOTROPIUM BROMIDE MONOHYDRATE
  5. SINGULAIR [Concomitant]
     Active Substance: MONTELUKAST SODIUM
  6. ADVAIR HFA [Concomitant]
     Active Substance: FLUTICASONE PROPIONATE\SALMETEROL XINAFOATE
  7. CETIRIZINE HYDROCHLORIDE [Concomitant]
     Active Substance: CETIRIZINE HYDROCHLORIDE
     Indication: Seasonal allergy
  8. VENTOLIN [Concomitant]
     Active Substance: ALBUTEROL SULFATE

REACTIONS (22)
  - Anaphylactic reaction [Recovering/Resolving]
  - Asthenia [Recovering/Resolving]
  - Gastroenteritis viral [Recovering/Resolving]
  - Malaise [Recovering/Resolving]
  - Joint stiffness [Recovering/Resolving]
  - Obstructive airways disorder [Recovering/Resolving]
  - Rash [Unknown]
  - Drug ineffective [Unknown]
  - Lower respiratory tract infection [Recovering/Resolving]
  - Pulmonary congestion [Recovering/Resolving]
  - Asthma [Unknown]
  - Sciatica [Recovering/Resolving]
  - Pain in extremity [Recovering/Resolving]
  - Humidity intolerance [Unknown]
  - Weight decreased [Recovering/Resolving]
  - Eye swelling [Unknown]
  - Dyspnoea exertional [Unknown]
  - Wheezing [Unknown]
  - Pulmonary function test abnormal [Unknown]
  - Cough [Unknown]
  - Disease recurrence [Unknown]
  - Urticaria [Unknown]

NARRATIVE: CASE EVENT DATE: 20111201
